FAERS Safety Report 8304463-0 (Version None)
Quarter: 2012Q2

REPORT INFORMATION
  Report Type: 
  Country: None (occurrence: None)
  Receive Date: 20120423
  Receipt Date: 20120410
  Transmission Date: 20120825
  Serious: Yes (Other)
  Sender: FDA-Public Use
  Company Number: US-SANOFI-AVENTIS-2012SA025165

PATIENT
  Age: 55 Year
  Sex: Female

DRUGS (3)
  1. FLECAINIDE ACETATE [Suspect]
  2. ALLEGRA [Suspect]
     Route: 048
     Dates: start: 20120310, end: 20120325
  3. ALLEGRA [Suspect]
     Indication: SEASONAL ALLERGY
     Route: 048
     Dates: start: 20120310, end: 20120325

REACTIONS (3)
  - OFF LABEL USE [None]
  - HYPOGLYCAEMIA [None]
  - FEELING ABNORMAL [None]
